FAERS Safety Report 9601829 (Version 2)
Quarter: 2014Q3

REPORT INFORMATION
  Report Type: Spontaneous
  Country: US (occurrence: US)
  Receive Date: 20131007
  Receipt Date: 20140923
  Transmission Date: 20150326
  Serious: Yes (Hospitalization)
  Sender: FDA-Public Use
  Company Number: US-BAYER-2013-120519

PATIENT
  Age: 34 Year
  Sex: Female
  Weight: 61.22 kg

DRUGS (1)
  1. MIRENA [Suspect]
     Active Substance: LEVONORGESTREL
     Indication: CONTRACEPTION
     Dosage: 20 MCG/24HR, CONT
     Route: 015
     Dates: start: 200909, end: 20130508

REACTIONS (6)
  - Device issue [None]
  - Injury [None]
  - Emotional distress [None]
  - Uterine perforation [None]
  - Pain [None]
  - Procedural pain [None]

NARRATIVE: CASE EVENT DATE: 200909
